FAERS Safety Report 17498672 (Version 1)
Quarter: 2020Q1

REPORT INFORMATION
  Report Type: Spontaneous
  Country: DE (occurrence: DE)
  Receive Date: 20200304
  Receipt Date: 20200304
  Transmission Date: 20200409
  Serious: Yes (Hospitalization, Other)
  Sender: FDA-Public Use
  Company Number: DE-009507513-2003DEU000215

PATIENT
  Age: 66 Year
  Sex: Female

DRUGS (5)
  1. PEMBROLIZUMAB. [Suspect]
     Active Substance: PEMBROLIZUMAB
     Dosage: 200 MILLIGRAM, CYCLICAL (CYCLE 2 TO 4)
     Dates: start: 20190313, end: 20190424
  2. PEMBROLIZUMAB. [Suspect]
     Active Substance: PEMBROLIZUMAB
     Dosage: 200 MILLIGRAM, CYCLICAL (CYCLE 5 TO 8)
     Dates: start: 20190515, end: 20190807
  3. PEMBROLIZUMAB. [Suspect]
     Active Substance: PEMBROLIZUMAB
     Indication: NON-SMALL CELL LUNG CANCER
     Dosage: 200 MILLIGRAM, Q3W (FIRST CYCLE)
     Dates: start: 20190220
  4. PEMBROLIZUMAB. [Suspect]
     Active Substance: PEMBROLIZUMAB
     Dosage: 200 MILLIGRAM, CYCLICAL (CYCLE 9 TO 11)
     Dates: start: 20190807, end: 20190920
  5. PEMBROLIZUMAB. [Suspect]
     Active Substance: PEMBROLIZUMAB
     Dosage: 200 MILLIGRAM, CYCLICAL (12TH CYCLE)
     Dates: start: 20191122

REACTIONS (6)
  - Inappropriate antidiuretic hormone secretion [Unknown]
  - Inappropriate schedule of product administration [Unknown]
  - Secondary adrenocortical insufficiency [Unknown]
  - Skin ulcer [Unknown]
  - Acute kidney injury [Unknown]
  - Lymphocytic hypophysitis [Unknown]

NARRATIVE: CASE EVENT DATE: 201908
